FAERS Safety Report 18913971 (Version 5)
Quarter: 2021Q2

REPORT INFORMATION
  Report Type: Spontaneous
  Country: CA (occurrence: CA)
  Receive Date: 20210218
  Receipt Date: 20210630
  Transmission Date: 20210717
  Serious: Yes (Life-Threatening, Hospitalization, Other)
  Sender: FDA-Public Use
  Company Number: CA-PFIZER INC-2021166875

PATIENT
  Age: 85 Year
  Sex: Female

DRUGS (26)
  1. LIPITOR [Suspect]
     Active Substance: ATORVASTATIN CALCIUM
     Dosage: UNK UNK, QD
     Route: 065
  2. LIPITOR [Suspect]
     Active Substance: ATORVASTATIN CALCIUM
     Dosage: UNK UNK, QD
     Route: 065
  3. LEVOTHYROXINE [LEVOTHYROXINE SODIUM] [Suspect]
     Active Substance: LEVOTHYROXINE SODIUM
     Dosage: UNK UNK, QD
  4. TELMISARTAN. [Suspect]
     Active Substance: TELMISARTAN
     Dosage: UNK UNK, QD
     Route: 065
  5. SYNTHROID [Suspect]
     Active Substance: LEVOTHYROXINE SODIUM
     Dosage: UNK UNK, QD
     Route: 048
  6. ACETAMINOPHEN;CODEINE PHOSPHATE [Suspect]
     Active Substance: ACETAMINOPHEN\CODEINE PHOSPHATE
     Dosage: UNK UNK, TID
     Route: 065
  7. AMLODIPINE BESILATE [Suspect]
     Active Substance: AMLODIPINE BESYLATE
     Dosage: UNK
  8. ATORVASTATIN CALCIUM. [Suspect]
     Active Substance: ATORVASTATIN CALCIUM
     Dosage: UNK UNK, QD
     Route: 065
  9. FERROUS FUMARATE [Suspect]
     Active Substance: FERROUS FUMARATE
     Dosage: UNK
     Route: 065
  10. SENOKOT [Suspect]
     Active Substance: SENNOSIDES
     Dosage: UNK UNK, QD
     Route: 048
  11. VITAMIN B12 [COBAMAMIDE] [Suspect]
     Active Substance: COBAMAMIDE
     Dosage: UNK UNK, QD
     Route: 048
  12. XATRAL [Suspect]
     Active Substance: ALFUZOSIN
     Dosage: UNK
     Route: 048
  13. PANTOLOC [Suspect]
     Active Substance: PANTOPRAZOLE SODIUM
     Dosage: UNK UNK, QD
     Route: 048
  14. ATIVAN [Suspect]
     Active Substance: LORAZEPAM
     Dosage: UNK UNK, QD
     Route: 065
  15. ENBREL [Suspect]
     Active Substance: ETANERCEPT
     Dosage: UNK
  16. ACETYLSALICYLIC ACID [Suspect]
     Active Substance: ASPIRIN
     Dosage: UNK
     Route: 065
  17. ORENCIA [Suspect]
     Active Substance: ABATACEPT
     Dosage: UNK
     Route: 065
  18. PANTOPRAZOLE [Suspect]
     Active Substance: PANTOPRAZOLE
     Dosage: UNK UNK, QD
     Route: 065
  19. LORAZEPAM. [Suspect]
     Active Substance: LORAZEPAM
     Dosage: UNK
     Route: 065
  20. PREGABALIN. [Suspect]
     Active Substance: PREGABALIN
     Dosage: UNK UNK, BID
     Route: 065
  21. INDOMETHACIN [INDOMETACIN] [Suspect]
     Active Substance: INDOMETHACIN
     Indication: RHEUMATOID ARTHRITIS
     Dosage: UNK
     Route: 065
  22. DARIFENACIN HYDROBROMIDE. [Suspect]
     Active Substance: DARIFENACIN HYDROBROMIDE
     Dosage: UNK
     Route: 048
  23. VITAMIN B12 [COBAMAMIDE] [Suspect]
     Active Substance: COBAMAMIDE
     Dosage: UNK UNK, QD
     Route: 048
  24. LYRICA [Suspect]
     Active Substance: PREGABALIN
     Dosage: UNK UNK, BID
     Route: 048
  25. MICARDIS [Suspect]
     Active Substance: TELMISARTAN
     Dosage: UNK UNK, QD
     Route: 065
  26. SIMPONI [Suspect]
     Active Substance: GOLIMUMAB
     Dosage: UNK
     Route: 065

REACTIONS (15)
  - Dementia [Unknown]
  - Spinal stenosis [Unknown]
  - Synovitis [Unknown]
  - Intervertebral disc protrusion [Unknown]
  - Joint swelling [Unknown]
  - Sleep disorder [Unknown]
  - Arthralgia [Unknown]
  - Fall [Unknown]
  - Pneumonia [Unknown]
  - Respiratory failure [Unknown]
  - Neuralgia [Unknown]
  - Thyroid disorder [Unknown]
  - Back pain [Unknown]
  - Fatigue [Unknown]
  - Drug ineffective [Unknown]
